FAERS Safety Report 25897708 (Version 1)
Quarter: 2025Q4

REPORT INFORMATION
  Report Type: Spontaneous
  Country: US (occurrence: US)
  Receive Date: 20251008
  Receipt Date: 20251008
  Transmission Date: 20260117
  Serious: No
  Sender: Kenvue
  Company Number: US-KENVUE-20250810168

PATIENT
  Sex: Female

DRUGS (1)
  1. MENS ROGAINE EXTRA STRENGTH [Suspect]
     Active Substance: MINOXIDIL
     Indication: Alopecia
     Dosage: ITS BEEN YEARS, FULL CAPFUL, TWICE A DAY
     Route: 061

REACTIONS (4)
  - Application site irritation [Not Recovered/Not Resolved]
  - Off label use [Unknown]
  - Product container issue [Unknown]
  - Overdose [Unknown]
